FAERS Safety Report 4952774-9 (Version None)
Quarter: 2006Q1

REPORT INFORMATION
  Report Type: 
  Country: None (occurrence: None)
  Receive Date: 20060324
  Receipt Date: 20060315
  Transmission Date: 20060701
  Serious: Yes (Hospitalization)
  Sender: FDA-Public Use
  Company Number: 2006UW04414

PATIENT
  Age: 80 Year
  Sex: Female
  Weight: 61.2 kg

DRUGS (5)
  1. TOPROL-XL [Suspect]
     Indication: HYPERTENSION
     Route: 048
     Dates: start: 20050923
  2. COUMADIN [Concomitant]
  3. LASIX [Concomitant]
  4. POTASSIUM [Concomitant]
  5. SYNTHROID [Concomitant]

REACTIONS (1)
  - PULMONARY OEDEMA [None]
